FAERS Safety Report 17200500 (Version 1)
Quarter: 2019Q4

REPORT INFORMATION
  Report Type: Report from Study
  Country: ES (occurrence: ES)
  Receive Date: 20191226
  Receipt Date: 20191226
  Transmission Date: 20200122
  Serious: Yes (Death)
  Sender: FDA-Public Use
  Company Number: ES-TEVA-2019-ES-1156976

PATIENT
  Age: 79 Year
  Sex: Male

DRUGS (1)
  1. IMATINIB (2833A) [Suspect]
     Active Substance: IMATINIB MESYLATE
     Indication: CHRONIC MYELOID LEUKAEMIA
     Dosage: 400
     Route: 048
     Dates: start: 20170717

REACTIONS (2)
  - Dyspnoea [Fatal]
  - Chronic respiratory failure [Fatal]

NARRATIVE: CASE EVENT DATE: 20171215
